FAERS Safety Report 6818732-4 (Version None)
Quarter: 2010Q2

REPORT INFORMATION
  Report Type: 
  Country: None (occurrence: None)
  Receive Date: 20100630
  Receipt Date: 20100623
  Transmission Date: 20101027
  Serious: Yes (Disabling)
  Sender: FDA-Public Use
  Company Number: 2010-1465

PATIENT
  Age: 72 Year
  Sex: Male

DRUGS (10)
  1. DYSPORT [Suspect]
     Indication: MUSCLE SPASTICITY
     Dosage: 900 UNITS (900 UNITS, SINGLE), INTRAMUSCULAR
     Route: 030
     Dates: start: 20090821, end: 20090821
  2. AMLODIPINE [Concomitant]
  3. AMITRIPTYLINE HYDROCHLORIDE [Concomitant]
  4. BACLOFEN [Concomitant]
  5. DIAZEPAM [Concomitant]
  6. OXAZEPAM [Concomitant]
  7. ASPIRIN [Concomitant]
  8. COLOXYL (DOCUSATE SODIUM) [Concomitant]
  9. SENNOKOT (SENNA ALEANDRINA) [Concomitant]
  10. LACTULOSE [Concomitant]

REACTIONS (1)
  - MUSCULAR WEAKNESS [None]
